FAERS Safety Report 6962083-4 (Version None)
Quarter: 2010Q3

REPORT INFORMATION
  Report Type: 
  Country: None (occurrence: None)
  Receive Date: 20100902
  Receipt Date: 20100824
  Transmission Date: 20110219
  Serious: Yes (Hospitalization)
  Sender: FDA-Public Use
  Company Number: CA-JNJFOC-20100102915

PATIENT
  Sex: Male
  Weight: 74.2 kg

DRUGS (1)
  1. REMICADE [Suspect]
     Indication: CROHN'S DISEASE
     Dosage: DOSE: ^400^
     Route: 042

REACTIONS (2)
  - ABSCESS INTESTINAL [None]
  - INTESTINAL FISTULA [None]
